FAERS Safety Report 21264923 (Version 1)
Quarter: 2022Q3

REPORT INFORMATION
  Report Type: Spontaneous
  Country: CN (occurrence: None)
  Receive Date: 20220829
  Receipt Date: 20220829
  Transmission Date: 20221026
  Serious: Yes (Hospitalization)
  Sender: FDA-Public Use
  Company Number: CN-ROCHE-3168706

PATIENT
  Age: 46 Year
  Sex: Female
  Weight: 51.5 kg

DRUGS (7)
  1. PERJETA [Suspect]
     Active Substance: PERTUZUMAB
     Indication: Invasive ductal breast carcinoma
     Dosage: 840 MG FIRST, 420 MG MAINTENANCE
     Route: 041
     Dates: start: 20220707, end: 20220707
  2. CARBOPLATIN [Suspect]
     Active Substance: CARBOPLATIN
     Indication: Invasive ductal breast carcinoma
     Dosage: AUC 6
     Route: 041
     Dates: start: 20220706
  3. HERCEPTIN [Suspect]
     Active Substance: TRASTUZUMAB
     Indication: Invasive ductal breast carcinoma
     Dosage: 8 MG/KG FOR THE FIRST TIME, MAINTAIN 6 MG/KG
     Route: 041
     Dates: start: 20220706
  4. PACLITAXEL [Suspect]
     Active Substance: PACLITAXEL
     Indication: Invasive ductal breast carcinoma
     Dosage: 260MG/M2
     Route: 041
     Dates: start: 20220706
  5. SODIUM CHLORIDE [Concomitant]
     Active Substance: SODIUM CHLORIDE
     Indication: Invasive ductal breast carcinoma
     Route: 041
     Dates: start: 20220706
  6. SODIUM CHLORIDE [Concomitant]
     Active Substance: SODIUM CHLORIDE
     Route: 041
     Dates: start: 20220706
  7. ANHYDROUS DEXTROSE [Concomitant]
     Active Substance: ANHYDROUS DEXTROSE
     Indication: Invasive ductal breast carcinoma
     Route: 041
     Dates: start: 20220706

REACTIONS (1)
  - Platelet count decreased [Recovering/Resolving]

NARRATIVE: CASE EVENT DATE: 20220725
